FAERS Safety Report 9613419 (Version 1)
Quarter: 2013Q4

REPORT INFORMATION
  Report Type: Spontaneous
  Country: US (occurrence: US)
  Receive Date: 20131010
  Receipt Date: 20131010
  Transmission Date: 20140711
  Serious: No
  Sender: FDA-Public Use
  Company Number: US-PFIZER INC-2013287966

PATIENT
  Age: 62 Year
  Sex: Male
  Weight: 68.03 kg

DRUGS (10)
  1. XELJANZ [Suspect]
     Indication: RHEUMATOID ARTHRITIS
     Dosage: 5 MG, 2X/DAY
     Route: 048
     Dates: start: 201306
  2. NABUMETONE [Concomitant]
     Dosage: UNK
  3. HYDROXYCHLOROQUINE [Concomitant]
     Dosage: UNK
  4. TERAZOSIN [Concomitant]
     Dosage: UNK
  5. LOSARTAN POTASSIUM [Concomitant]
     Dosage: UNK
  6. NEXIUM [Concomitant]
     Dosage: UNK
  7. AMLODIPINE [Concomitant]
     Dosage: UNK
  8. GLIPIZIDE [Concomitant]
     Dosage: UNK
  9. ATORVASTATIN [Concomitant]
     Dosage: UNK
  10. IRON [Concomitant]
     Dosage: UNK

REACTIONS (1)
  - Rash erythematous [Unknown]
